FAERS Safety Report 5369646-0 (Version None)
Quarter: 2007Q2

REPORT INFORMATION
  Report Type: 
  Country: None (occurrence: None)
  Receive Date: 20070620
  Receipt Date: 20070612
  Transmission Date: 20071010
  Serious: Yes (Life-Threatening)
  Sender: FDA-Public Use
  Company Number: 07H-163-0312736-00

PATIENT
  Age: 25 Year
  Sex: Male

DRUGS (4)
  1. QUELICIN [Suspect]
     Indication: INTUBATION
     Dosage: 200 MG
     Dates: start: 20070603
  2. LIDOCAINE [Concomitant]
  3. AMIDATE (ETOMIDATE SULFATE) [Concomitant]
  4. VECURONIUM (VECURONIUM) [Concomitant]

REACTIONS (3)
  - DRUG INEFFECTIVE [None]
  - ENDOTRACHEAL INTUBATION COMPLICATION [None]
  - HYPOXIA [None]
